FAERS Safety Report 6279827-X (Version None)
Quarter: 2009Q3

REPORT INFORMATION
  Report Type: 
  Country: None (occurrence: None)
  Receive Date: 20090723
  Receipt Date: 20090710
  Transmission Date: 20100115
  Serious: Yes (Other)
  Sender: FDA-Public Use
  Company Number: PHHY2009NZ26262

PATIENT
  Sex: Female

DRUGS (6)
  1. CLOZARIL [Suspect]
     Indication: SCHIZOPHRENIA
     Dosage: UNK
     Dates: start: 19980807
  2. CLOZARIL [Suspect]
     Dosage: UNK
     Dates: start: 20090703, end: 20090708
  3. CHLORPROMAZINE [Concomitant]
     Dosage: 50 MG NOON AND 150 MG NOCTE
  4. CHLORPROMAZINE [Concomitant]
     Dosage: 25 MG BD, PRN
  5. ZOPICLONE [Concomitant]
     Dosage: 7.5 TO 15 MG NOCTE
  6. CITALOPRAM HYDROBROMIDE [Concomitant]
     Dosage: 60 MG, QHS

REACTIONS (14)
  - ANTIPSYCHOTIC DRUG LEVEL BELOW THERAPEUTIC [None]
  - ELECTROENCEPHALOGRAM ABNORMAL [None]
  - ENCEPHALITIS [None]
  - ENCEPHALOPATHY [None]
  - GAIT DISTURBANCE [None]
  - HEADACHE [None]
  - IMPAIRED WORK ABILITY [None]
  - MENTAL IMPAIRMENT [None]
  - MYOCLONUS [None]
  - NERVOUS SYSTEM DISORDER [None]
  - OBESITY [None]
  - POST-TRAUMATIC STRESS DISORDER [None]
  - PSYCHOTIC DISORDER [None]
  - STRESS [None]
